FAERS Safety Report 7837680-4 (Version None)
Quarter: 2011Q4

REPORT INFORMATION
  Report Type: 
  Country: None (occurrence: None)
  Receive Date: 20111024
  Receipt Date: 20111017
  Transmission Date: 20120403
  Serious: Yes (Hospitalization, Other)
  Sender: FDA-Public Use
  Company Number: PHEH2009US00730

PATIENT
  Sex: Female

DRUGS (60)
  1. SENSIPAR [Concomitant]
  2. LEXAPRO [Concomitant]
  3. THALIDOMIDE [Concomitant]
  4. TYLENOL PM, EXTRA STRENGTH [Concomitant]
  5. FLUTAMIDE [Concomitant]
  6. AREDIA [Suspect]
     Indication: LIGHT CHAIN ANALYSIS INCREASED
     Dosage: UNK
     Dates: end: 20070101
  7. DITROPAN XL [Concomitant]
     Dosage: UNK
  8. SIMVASTATIN [Concomitant]
  9. TYLENOL-500 [Concomitant]
     Dosage: UNK
  10. DECADRON [Concomitant]
  11. ONDANSETRON [Concomitant]
  12. LABETALOL HCL [Concomitant]
  13. LORTAB [Concomitant]
  14. IMODIUM [Concomitant]
  15. ZOFRAN [Concomitant]
  16. LIDOCAINE [Concomitant]
     Dosage: UNK
  17. LEVAQUIN [Concomitant]
  18. DEMADEX [Concomitant]
  19. AREDIA [Suspect]
     Indication: MULTIPLE MYELOMA
     Dosage: UNK
     Route: 042
     Dates: start: 19990803, end: 19991130
  20. CHEMOTHERAPEUTICS NOS [Concomitant]
  21. ZOLOFT [Concomitant]
     Dosage: 100 MG, QD
  22. VITAMIN E [Concomitant]
  23. CLONIDINE [Concomitant]
     Dosage: UNK
  24. CIPROFLOXACIN [Concomitant]
  25. OXYCODONE HCL [Concomitant]
  26. IRON [Concomitant]
  27. ACETAMINOPHEN [Concomitant]
  28. EPOGEN [Concomitant]
  29. NORVASC [Concomitant]
  30. FLORINEF [Concomitant]
     Dosage: UNK
  31. MIDODRINE HYDROCHLORIDE [Concomitant]
  32. TYLENOL-500 [Concomitant]
  33. DURAGESIC-100 [Concomitant]
  34. LOTREL [Concomitant]
     Dosage: UNK
  35. RENAGEL [Concomitant]
  36. AUGMENTIN '125' [Concomitant]
  37. AMOXICILLIN [Concomitant]
  38. PREMARIN [Concomitant]
     Dosage: UNK
  39. AMBIEN [Concomitant]
     Dosage: UNK
  40. MACROBID [Concomitant]
  41. AZITHROMYCIN [Concomitant]
  42. CEPHALEXIN [Concomitant]
  43. AVELOX [Concomitant]
  44. THALOMID [Concomitant]
     Dosage: UNK
     Dates: start: 19990801
  45. RADIATION THERAPY [Concomitant]
  46. ALLOPURINOL [Concomitant]
  47. AMIODARONE HCL [Concomitant]
  48. LOPERAMIDE HCL [Concomitant]
  49. REVLIMID [Concomitant]
  50. HYDROCODONE BITARTRATE [Concomitant]
  51. CHLORHEXIDINE GLUCONATE [Concomitant]
  52. PREVACID [Concomitant]
  53. COUMADIN [Concomitant]
  54. PENTOXIFYLLINE [Concomitant]
  55. TRENTAL ^ALBERT-ROUSSEL^ [Concomitant]
     Dosage: UNK
  56. ZOCOR [Concomitant]
  57. FLUDROCORTISONE ACETATE [Concomitant]
  58. VITAMIN D [Concomitant]
  59. DUONEB [Concomitant]
  60. PHOSLO [Concomitant]

REACTIONS (100)
  - MULTIPLE MYELOMA [None]
  - BONE DISORDER [None]
  - ASTHENIA [None]
  - INJURY [None]
  - JOINT DISLOCATION [None]
  - SPINAL COMPRESSION FRACTURE [None]
  - SYNOVIAL CYST [None]
  - FOOT FRACTURE [None]
  - ROTATOR CUFF SYNDROME [None]
  - MUSCULOSKELETAL PAIN [None]
  - OSTEONECROSIS OF JAW [None]
  - IRRITABLE BOWEL SYNDROME [None]
  - GASTROOESOPHAGEAL REFLUX DISEASE [None]
  - PARAESTHESIA [None]
  - NECK PAIN [None]
  - DISABILITY [None]
  - SKIN EROSION [None]
  - DIARRHOEA [None]
  - FISTULA [None]
  - BLEPHARITIS [None]
  - RASH [None]
  - NAUSEA [None]
  - MUSCULAR WEAKNESS [None]
  - PAIN IN EXTREMITY [None]
  - MOBILITY DECREASED [None]
  - BONE NEOPLASM [None]
  - VASCULAR PSEUDOANEURYSM [None]
  - SINUSITIS [None]
  - COUGH [None]
  - HYPERCHOLESTEROLAEMIA [None]
  - PAIN [None]
  - FOCAL SEGMENTAL GLOMERULOSCLEROSIS [None]
  - VERTIGO [None]
  - ODYNOPHAGIA [None]
  - PULMONARY FUNCTION TEST DECREASED [None]
  - DYSPNOEA EXERTIONAL [None]
  - DEFORMITY [None]
  - INFECTION [None]
  - DECREASED APPETITE [None]
  - SENSORY NEUROPATHY HEREDITARY [None]
  - VENOUS STENOSIS [None]
  - LACERATION [None]
  - SURGICAL FAILURE [None]
  - PULMONARY CONGESTION [None]
  - ATELECTASIS [None]
  - ACIDOSIS [None]
  - FLUID OVERLOAD [None]
  - ATRIAL FIBRILLATION [None]
  - DEPRESSION [None]
  - GINGIVAL DISORDER [None]
  - ABASIA [None]
  - COLON ADENOMA [None]
  - RECTAL HAEMORRHAGE [None]
  - ATROPHIC VULVOVAGINITIS [None]
  - URINARY TRACT INFECTION [None]
  - ADRENAL NEOPLASM [None]
  - FALL [None]
  - ANAEMIA [None]
  - OSTEOARTHRITIS [None]
  - GAIT DISTURBANCE [None]
  - ANKLE FRACTURE [None]
  - SMALL INTESTINAL OBSTRUCTION [None]
  - DYSPNOEA [None]
  - ANXIETY [None]
  - ATAXIA [None]
  - HAEMORRHAGE [None]
  - ABDOMINAL PAIN [None]
  - OTITIS MEDIA CHRONIC [None]
  - SPINAL COLUMN STENOSIS [None]
  - UPPER RESPIRATORY TRACT INFECTION [None]
  - HERPES VIRUS INFECTION [None]
  - JOINT SWELLING [None]
  - JAW FRACTURE [None]
  - DEAFNESS [None]
  - HYPOAESTHESIA [None]
  - ARTHRALGIA [None]
  - NEUROPATHY PERIPHERAL [None]
  - URGE INCONTINENCE [None]
  - DIVERTICULUM INTESTINAL [None]
  - HAEMORRHOIDS [None]
  - SUBCUTANEOUS ABSCESS [None]
  - EXCORIATION [None]
  - ORTHOSTATIC HYPOTENSION [None]
  - OESOPHAGEAL ULCER [None]
  - DIAPHRAGMATIC HERNIA [None]
  - DYSPHAGIA [None]
  - RENAL FAILURE CHRONIC [None]
  - WEIGHT DECREASED [None]
  - DYSPEPSIA [None]
  - TOOTH ABSCESS [None]
  - NIGHT SWEATS [None]
  - EAR PAIN [None]
  - SLEEP APNOEA SYNDROME [None]
  - OEDEMA PERIPHERAL [None]
  - TOXICITY TO VARIOUS AGENTS [None]
  - HEPATIC MASS [None]
  - HEPATIC ENZYME INCREASED [None]
  - CARDIOMEGALY [None]
  - PNEUMONIA [None]
  - EXOSTOSIS [None]
